FAERS Safety Report 19961386 (Version 4)
Quarter: 2022Q1

REPORT INFORMATION
  Report Type: Spontaneous
  Country: US (occurrence: US)
  Receive Date: 20211017
  Receipt Date: 20220201
  Transmission Date: 20220423
  Serious: No
  Sender: FDA-Public Use
  Company Number: US-SA-SAC20211008000630

PATIENT
  Age: 67 Year
  Sex: Female

DRUGS (1)
  1. DUPIXENT [Suspect]
     Active Substance: DUPILUMAB
     Indication: Product used for unknown indication
     Dosage: 300 MG, FREQUENCY OTHER
     Route: 058
     Dates: start: 20210724

REACTIONS (7)
  - Injection site pain [Unknown]
  - Injection site mass [Recovered/Resolved]
  - COVID-19 [Recovered/Resolved]
  - Dermatitis [Unknown]
  - Pruritus [Unknown]
  - Rash pruritic [Unknown]
  - Drug ineffective [Unknown]

NARRATIVE: CASE EVENT DATE: 20210729
